FAERS Safety Report 9478004 (Version 1)
Quarter: 2013Q3

REPORT INFORMATION
  Report Type: Spontaneous
  Country: FR (occurrence: FR)
  Receive Date: 20130827
  Receipt Date: 20130827
  Transmission Date: 20140515
  Serious: Yes (Other)
  Sender: FDA-Public Use
  Company Number: FR-BAYER-2013-102144

PATIENT
  Age: 25 Year
  Sex: Female

DRUGS (1)
  1. JASMINE [Suspect]

REACTIONS (8)
  - Convulsion [Recovered/Resolved]
  - Monoplegia [Recovered/Resolved]
  - Transient ischaemic attack [Recovered/Resolved]
  - VIIth nerve paralysis [Recovered/Resolved]
  - Visual impairment [Recovered/Resolved]
  - Visual field defect [Recovered/Resolved]
  - Headache [Recovered/Resolved]
  - Visual impairment [Recovered/Resolved]
